FAERS Safety Report 7234366-4 (Version None)
Quarter: 2011Q1

REPORT INFORMATION
  Report Type: 
  Country: None (occurrence: None)
  Receive Date: 20110119
  Receipt Date: 20110111
  Transmission Date: 20110831
  Serious: Yes (Other)
  Sender: FDA-Public Use
  Company Number: US-PURDUE-USA-2010-0053070

PATIENT
  Age: 41 Year
  Sex: Female

DRUGS (1)
  1. OXYCONTIN [Suspect]
     Indication: PRODUCT USED FOR UNKNOWN INDICATION
     Dosage: UNK

REACTIONS (4)
  - HAEMATEMESIS [None]
  - MEDICATION RESIDUE [None]
  - MALAISE [None]
  - PRODUCT SIZE ISSUE [None]
